FAERS Safety Report 5627187-7 (Version None)
Quarter: 2008Q1

REPORT INFORMATION
  Report Type: 
  Country: None (occurrence: None)
  Receive Date: 20080215
  Receipt Date: 20080207
  Transmission Date: 20080703
  Serious: Yes (Hospitalization)
  Sender: FDA-Public Use
  Company Number: SE-BAYER-200812518GPV

PATIENT
  Age: 19 Year
  Sex: Female

DRUGS (4)
  1. IUS SHG04209F [Suspect]
     Indication: CONTRACEPTION
     Route: 015
     Dates: start: 20080131, end: 20080201
  2. PRONAXEN 250MG [Concomitant]
     Indication: MUSCULOSKELETAL PAIN
     Dosage: UNIT DOSE: 250 MG
     Route: 048
     Dates: start: 20080127, end: 20080130
  3. PRONAXEN 250MG [Concomitant]
     Route: 048
     Dates: start: 20080131, end: 20080205
  4. ZOFRAN [Concomitant]
     Indication: NAUSEA
     Route: 060
     Dates: start: 20080201, end: 20080201

REACTIONS (1)
  - UTERINE SPASM [None]
